FAERS Safety Report 15767151 (Version 5)
Quarter: 2019Q1

REPORT INFORMATION
  Report Type: Report from Study
  Country: US (occurrence: US)
  Receive Date: 20181227
  Receipt Date: 20190326
  Transmission Date: 20190417
  Serious: Yes (Hospitalization, Other)
  Sender: FDA-Public Use
  Company Number: US-TESAROUBC-2018-TSO2601-US

PATIENT
  Age: 65 Year
  Sex: Female

DRUGS (2)
  1. ZEJULA [Suspect]
     Active Substance: NIRAPARIB
     Indication: OVARIAN CANCER
     Dosage: 300 MG, QD IN PM TAKEN WITH FOOD
     Dates: start: 20181211, end: 20190110
  2. ZEJULA [Suspect]
     Active Substance: NIRAPARIB
     Dosage: 200 MG, QD, HS
     Dates: start: 20190128

REACTIONS (18)
  - Bone marrow failure [Not Recovered/Not Resolved]
  - Pharyngeal ulceration [Recovered/Resolved]
  - Dizziness [Not Recovered/Not Resolved]
  - Nausea [Recovering/Resolving]
  - Dry mouth [Recovered/Resolved]
  - Thrombocytopenia [Recovered/Resolved]
  - Decreased appetite [Recovered/Resolved]
  - Stomatitis [Recovered/Resolved]
  - Dysphagia [Recovered/Resolved]
  - Feeling jittery [Unknown]
  - Vomiting [Not Recovered/Not Resolved]
  - Abdominal pain upper [Unknown]
  - Anxiety [Unknown]
  - Heart rate increased [Unknown]
  - Throat tightness [Recovered/Resolved]
  - Oropharyngeal pain [Recovered/Resolved]
  - Weight decreased [Unknown]
  - Fatigue [Not Recovered/Not Resolved]

NARRATIVE: CASE EVENT DATE: 201812
